FAERS Safety Report 18332615 (Version 1)
Quarter: 2020Q3

REPORT INFORMATION
  Report Type: Spontaneous
  Country: US (occurrence: US)
  Receive Date: 20200930
  Receipt Date: 20200930
  Transmission Date: 20201103
  Serious: No
  Sender: FDA-Public Use
  Company Number: US-SA-2020SA267287

PATIENT

DRUGS (1)
  1. DUPIXENT [Suspect]
     Active Substance: DUPILUMAB
     Indication: DERMATITIS ATOPIC
     Dosage: 300 MG, QOW
     Route: 058
     Dates: start: 202008

REACTIONS (6)
  - Gingival pain [Unknown]
  - Dry mouth [Unknown]
  - Oral blood blister [Unknown]
  - Oral pain [Unknown]
  - Blood blister [Unknown]
  - Blister [Unknown]

NARRATIVE: CASE EVENT DATE: 2020
